FAERS Safety Report 8044381-9 (Version None)
Quarter: 2012Q1

REPORT INFORMATION
  Report Type: 
  Country: None (occurrence: None)
  Receive Date: 20120113
  Receipt Date: 20120103
  Transmission Date: 20120608
  Serious: Yes (Death)
  Sender: FDA-Public Use
  Company Number: US-SHIONOGI, INC-2012000003

PATIENT
  Age: 14 Year
  Sex: Male

DRUGS (10)
  1. PENICILLIN [Suspect]
     Dosage: UNK
  2. CLONIDINE [Suspect]
     Dosage: UNK
  3. LAXATIVE [Suspect]
     Dosage: UNK
  4. QUETIAPINE [Suspect]
     Dosage: UNK
  5. ARIPIPRAZOLE [Suspect]
     Dosage: UNK
  6. LISDEXAMFETAMINE DIMESYLATE [Suspect]
     Dosage: UNK
  7. CODEINE SULFATE [Suspect]
     Dosage: UNK
  8. MELOXICAM [Suspect]
     Dosage: UNK
  9. VALPROIC ACID [Suspect]
     Dosage: UNK
  10. DIPHENHYDRAMINE HCL [Suspect]
     Dosage: UNK

REACTIONS (1)
  - CARDIO-RESPIRATORY ARREST [None]
